FAERS Safety Report 6480579-9 (Version None)
Quarter: 2009Q4

REPORT INFORMATION
  Report Type: 
  Country: None (occurrence: None)
  Receive Date: 20091203
  Receipt Date: 20091120
  Transmission Date: 20100525
  Serious: Yes (Other)
  Sender: FDA-Public Use
  Company Number: SPV1-2009-02378

PATIENT
  Sex: Female
  Weight: 59 kg

DRUGS (1)
  1. ADDERALL XR 10 [Suspect]
     Indication: ATTENTION DEFICIT/HYPERACTIVITY DISORDER
     Dosage: 30 MG, 1X/DAY:QD, ORAL
     Route: 048
     Dates: end: 20091021

REACTIONS (7)
  - BREAST CANCER [None]
  - DELAYED EFFECTS OF RADIATION [None]
  - HODGKIN'S DISEASE [None]
  - HYPERHIDROSIS [None]
  - INSOMNIA [None]
  - NERVE INJURY [None]
  - PROCEDURAL COMPLICATION [None]
